FAERS Safety Report 4668492-0 (Version None)
Quarter: 2005Q2

REPORT INFORMATION
  Report Type: 
  Country: None (occurrence: None)
  Receive Date: 20050519
  Receipt Date: 20050510
  Transmission Date: 20051028
  Serious: Yes (Hospitalization)
  Sender: FDA-Public Use
  Company Number: US015244

PATIENT
  Age: 27 Year
  Sex: Male
  Weight: 181.4388 kg

DRUGS (3)
  1. GABITRIL [Suspect]
     Indication: CYCLOTHYMIC DISORDER
     Dosage: 16 MG QD ORAL
     Route: 048
     Dates: start: 20020601, end: 20050301
  2. GABITRIL [Suspect]
     Indication: CYCLOTHYMIC DISORDER
     Dosage: 10 MG QD ORAL
     Route: 048
     Dates: start: 20050301
  3. SEROQUEL [Concomitant]

REACTIONS (4)
  - CONVULSION [None]
  - POSTICTAL STATE [None]
  - SKIN LACERATION [None]
  - THERAPEUTIC RESPONSE DECREASED [None]
